FAERS Safety Report 19711170 (Version 3)
Quarter: 2021Q3

REPORT INFORMATION
  Report Type: Spontaneous
  Country: US (occurrence: US)
  Receive Date: 20210816
  Receipt Date: 20210825
  Transmission Date: 20211014
  Serious: No
  Sender: FDA-Public Use
  Company Number: US-SA-2021SA265974

PATIENT
  Age: 65 Year
  Sex: Male

DRUGS (1)
  1. ALLEGRA D?12 HOUR [Suspect]
     Active Substance: FEXOFENADINE HYDROCHLORIDE\PSEUDOEPHEDRINE HYDROCHLORIDE
     Indication: UPPER-AIRWAY COUGH SYNDROME
     Dosage: UNK

REACTIONS (3)
  - Faeces discoloured [Unknown]
  - Drug ineffective [Unknown]
  - Product residue present [Unknown]
